FAERS Safety Report 9026705 (Version 1)
Quarter: 2013Q1

REPORT INFORMATION
  Report Type: Spontaneous
  Country: US (occurrence: None)
  Receive Date: 20130114
  Receipt Date: 20130114
  Transmission Date: 20140127
  Serious: Yes (Disabling)
  Sender: FDA-Public Use
  Company Number: None

PATIENT
  Age: 61 Year
  Sex: Male
  Weight: 45.36 kg

DRUGS (2)
  1. CLONIDINE HCL [Suspect]
     Indication: HYPERLIPIDAEMIA
     Dosage: ONE TAB DAILY RX# 6494761R GIFFORD + WEST DED# A68914574?DR. CRD RPA-C, JESSICA?DR. LOUIS J. CASTRO ?CIN H AK6628OZ
     Dates: start: 19860801, end: 20121231
  2. CLONIDINE HCL [Suspect]
     Indication: HYPERTENSION
     Dosage: ONE TAB DAILY RX# 6494761R GIFFORD + WEST DED# A68914574?DR. CRD RPA-C, JESSICA?DR. LOUIS J. CASTRO ?CIN H AK6628OZ
     Dates: start: 19860801, end: 20121231

REACTIONS (4)
  - Cough [None]
  - Choking [None]
  - Salivary hypersecretion [None]
  - Blood pressure decreased [None]
